FAERS Safety Report 10224872 (Version 1)
Quarter: 2014Q2

REPORT INFORMATION
  Report Type: Spontaneous
  Country: GB (occurrence: GB)
  Receive Date: 20140609
  Receipt Date: 20140609
  Transmission Date: 20141212
  Serious: Yes (Hospitalization)
  Sender: FDA-Public Use
  Company Number: GB-GLAXOSMITHKLINE-B0999652A

PATIENT
  Age: 45 Year
  Sex: Female

DRUGS (9)
  1. ELTROMBOPAG [Suspect]
     Indication: IMMUNE THROMBOCYTOPENIC PURPURA
     Dosage: 50MG PER DAY
     Route: 048
     Dates: start: 20140103, end: 20140517
  2. DOCUSATE [Concomitant]
  3. FULTIUM-D3 [Concomitant]
  4. LANSOPRAZOLE [Concomitant]
  5. MIRTAZAPINE [Concomitant]
  6. OXYCODONE [Concomitant]
  7. PARACETAMOL [Concomitant]
  8. TIBOLONE [Concomitant]
  9. TOPIRAMATE [Concomitant]

REACTIONS (2)
  - Pulmonary embolism [Recovering/Resolving]
  - Chest pain [Recovering/Resolving]
